FAERS Safety Report 22622392 (Version 1)
Quarter: 2023Q2

REPORT INFORMATION
  Report Type: Spontaneous
  Country: None (occurrence: CN)
  Receive Date: 20230620
  Receipt Date: 20230620
  Transmission Date: 20230721
  Serious: Yes (Life-Threatening, Other)
  Sender: FDA-Public Use
  Company Number: CN-Jiangsu Hengrui Medicine Co., Ltd.-2142946

PATIENT
  Age: 72 Year
  Sex: Male
  Weight: 51.5 kg

DRUGS (3)
  1. CISATRACURIUM BESYLATE [Suspect]
     Active Substance: CISATRACURIUM BESYLATE
     Indication: Stupor
     Route: 017
     Dates: start: 20230524, end: 20230524
  2. DEXMEDETOMIDINE HYDROCHLORIDE [Suspect]
     Active Substance: DEXMEDETOMIDINE HYDROCHLORIDE
     Dates: start: 20230524, end: 20230524
  3. SODIUM CHLORIDE [Concomitant]
     Active Substance: SODIUM CHLORIDE
     Dates: start: 20230524, end: 20230524

REACTIONS (4)
  - Muscle spasms [Recovering/Resolving]
  - Pain [Recovering/Resolving]
  - Malignant hypertension [Recovering/Resolving]
  - Heart rate increased [Recovering/Resolving]

NARRATIVE: CASE EVENT DATE: 20230524
